FAERS Safety Report 8125490-2 (Version None)
Quarter: 2012Q1

REPORT INFORMATION
  Report Type: 
  Country: None (occurrence: None)
  Receive Date: 20120209
  Receipt Date: 20120207
  Transmission Date: 20120608
  Serious: No
  Sender: FDA-Public Use
  Company Number: US-PFIZER INC-2012033733

PATIENT
  Sex: Female
  Weight: 55.329 kg

DRUGS (1)
  1. CHANTIX [Suspect]
     Indication: SMOKING CESSATION THERAPY
     Dosage: UNK
     Route: 048
     Dates: start: 20120101, end: 20120201

REACTIONS (6)
  - SWELLING FACE [None]
  - MALAISE [None]
  - DRY MOUTH [None]
  - DIZZINESS [None]
  - DYSGEUSIA [None]
  - DIARRHOEA [None]
